FAERS Safety Report 10437872 (Version 1)
Quarter: 2014Q3

REPORT INFORMATION
  Report Type: Spontaneous
  Country: US (occurrence: US)
  Receive Date: 20140908
  Receipt Date: 20140908
  Transmission Date: 20150326
  Serious: No
  Sender: FDA-Public Use
  Company Number: US-BRISTOL-MYERS SQUIBB COMPANY-21027107

PATIENT
  Age: 72 Year
  Sex: Female
  Weight: 74.83 kg

DRUGS (3)
  1. ZOLOFT [Concomitant]
     Active Substance: SERTRALINE HYDROCHLORIDE
  2. LEVOTHYROXINE [Concomitant]
     Active Substance: LEVOTHYROXINE
  3. ABILIFY [Suspect]
     Active Substance: ARIPIPRAZOLE

REACTIONS (2)
  - Rash [Recovered/Resolved]
  - Hypersensitivity [Unknown]
